FAERS Safety Report 9834291 (Version 3)
Quarter: 2014Q1

REPORT INFORMATION
  Report Type: Spontaneous
  Country: CH (occurrence: CH)
  Receive Date: 20140122
  Receipt Date: 20140207
  Transmission Date: 20141002
  Serious: Yes (Other)
  Sender: FDA-Public Use
  Company Number: CH-JNJFOC-20140108097

PATIENT
  Age: 48 Year
  Sex: Male
  Weight: 75 kg

DRUGS (8)
  1. REMICADE [Suspect]
     Indication: CROHN^S DISEASE
     Dosage: FIRST INFUSION OF RE-EXPOSURE
     Route: 042
     Dates: start: 20131118
  2. REMICADE [Suspect]
     Indication: CROHN^S DISEASE
     Route: 042
     Dates: start: 2009, end: 2011
  3. REMICADE [Suspect]
     Indication: SPONDYLITIS
     Dosage: FIRST INFUSION OF RE-EXPOSURE
     Route: 042
     Dates: start: 20131118
  4. REMICADE [Suspect]
     Indication: SPONDYLITIS
     Route: 042
     Dates: start: 2009, end: 2011
  5. SIMPONI [Suspect]
     Indication: CROHN^S DISEASE
     Route: 058
     Dates: start: 2011, end: 201210
  6. SIMPONI [Suspect]
     Indication: SPONDYLITIS
     Route: 058
     Dates: start: 2011, end: 201210
  7. HUMIRA [Suspect]
     Indication: CROHN^S DISEASE
     Route: 065
     Dates: start: 201210, end: 201311
  8. HUMIRA [Suspect]
     Indication: SPONDYLITIS
     Route: 065
     Dates: start: 201210, end: 201311

REACTIONS (1)
  - Skin neoplasm excision [Not Recovered/Not Resolved]
